FAERS Safety Report 4264768-X (Version None)
Quarter: 2004Q1

REPORT INFORMATION
  Report Type: 
  Country: None (occurrence: None)
  Receive Date: 20040105
  Receipt Date: 20031219
  Transmission Date: 20041129
  Serious: Yes (Congenital Anomaly)
  Sender: FDA-Public Use
  Company Number: STA-AE-03-MTX-206

PATIENT
  Sex: Male

DRUGS (2)
  1. METHOTREXATE [Suspect]
     Indication: ABORTION INDUCED
     Dosage: 50 MG/M^2 1X PER 1 CYC, UNK
  2. MISOPROSTOL [Suspect]
     Indication: ABORTION INDUCED
     Dosage: 800 UG 1X PER 1 CYCLE, UNK

REACTIONS (16)
  - ANOMALY OF EXTERNAL EAR CONGENITAL [None]
  - CLEFT LIP AND PALATE [None]
  - CLINODACTYLY [None]
  - CONGENITAL ANOMALY [None]
  - CONGENITAL HAND MALFORMATION [None]
  - CONGENITAL NAIL DISORDER [None]
  - CRANIOSYNOSTOSIS [None]
  - CRYPTORCHISM [None]
  - DELAYED FONTANELLE CLOSURE [None]
  - FALLOT'S TETRALOGY [None]
  - LIMB REDUCTION DEFECT [None]
  - MATERNAL DRUGS AFFECTING FOETUS [None]
  - PTERYGIUM [None]
  - SYNDACTYLY [None]
  - TALIPES [None]
  - WEIGHT GAIN POOR [None]
